FAERS Safety Report 9285870 (Version 4)
Quarter: 2015Q2

REPORT INFORMATION
  Report Type: Spontaneous
  Country: US (occurrence: US)
  Receive Date: 20130513
  Receipt Date: 20150427
  Transmission Date: 20150821
  Serious: Yes (Death, Hospitalization, Disabling)
  Sender: FDA-Public Use
  Company Number: US-BAYER-2013-057057

PATIENT
  Age: 48 Year
  Sex: Female

DRUGS (8)
  1. OCELLA [Suspect]
     Active Substance: DROSPIRENONE\ETHINYL ESTRADIOL
     Indication: FIBROMA
     Dosage: UNK
     Dates: start: 201109, end: 201207
  2. YAZ [Suspect]
     Active Substance: DROSPIRENONE\ETHINYL ESTRADIOL
     Indication: FIBROMA
     Dosage: UNK
     Dates: start: 200902, end: 201005
  3. GIANVI [Suspect]
     Active Substance: DROSPIRENONE\ETHINYL ESTRADIOL
     Indication: FIBROMA
     Dosage: UNK
     Dates: start: 201006, end: 201012
  4. LIPITOR [Concomitant]
     Active Substance: ATORVASTATIN CALCIUM
     Dosage: 10 MG
     Dates: start: 20120419
  5. YASMIN [Suspect]
     Active Substance: DROSPIRENONE\ETHINYL ESTRADIOL
     Indication: FIBROMA
     Dosage: UNK
     Dates: start: 20101231, end: 201107
  6. IMURAN [Concomitant]
     Active Substance: AZATHIOPRINE
     Indication: SJOGREN^S SYNDROME
     Dosage: 1 A DAY
     Dates: start: 2010, end: 2012
  7. AZATHIOPRINE. [Concomitant]
     Active Substance: AZATHIOPRINE
     Dosage: 50 MG, UNK
     Dates: start: 20120514
  8. NEXIUM [Concomitant]
     Active Substance: ESOMEPRAZOLE MAGNESIUM

REACTIONS (7)
  - Cerebrovascular accident [Fatal]
  - Injury [Fatal]
  - Deformity [None]
  - Off label use [None]
  - Pulmonary embolism [Fatal]
  - Pain [Fatal]
  - Acute myocardial infarction [Fatal]

NARRATIVE: CASE EVENT DATE: 20120725
